FAERS Safety Report 5132448-4 (Version None)
Quarter: 2006Q4

REPORT INFORMATION
  Report Type: 
  Country: None (occurrence: None)
  Receive Date: 20061023
  Receipt Date: 20061009
  Transmission Date: 20070319
  Serious: Yes (Hospitalization)
  Sender: FDA-Public Use
  Company Number: PHBS2006BR15746

PATIENT
  Age: 35 Year
  Sex: Female
  Weight: 50 kg

DRUGS (3)
  1. SLOW-K [Suspect]
     Indication: HYPOGLYCAEMIA
     Dosage: 6 G/DAY
     Route: 048
     Dates: start: 19900101
  2. SLOW-K [Suspect]
     Dosage: 3.6 G/DAY
     Route: 048
  3. POTASSIUM CHLORIDE [Concomitant]
     Route: 048

REACTIONS (8)
  - DRUG INEFFECTIVE [None]
  - DYSPEPSIA [None]
  - FATIGUE [None]
  - GASTRIC ULCER [None]
  - MALAISE [None]
  - MUSCLE FATIGUE [None]
  - MYALGIA [None]
  - PAIN IN EXTREMITY [None]
